FAERS Safety Report 23384088 (Version 1)
Quarter: 2024Q1

REPORT INFORMATION
  Report Type: Spontaneous
  Country: US (occurrence: US)
  Receive Date: 20240109
  Receipt Date: 20240109
  Transmission Date: 20240410
  Serious: Yes (Other)
  Sender: FDA-Public Use
  Company Number: US-FreseniusKabi-FK202400458

PATIENT
  Age: 31 Year
  Sex: Male

DRUGS (4)
  1. CISPLATIN [Suspect]
     Active Substance: CISPLATIN
     Indication: Testicular choriocarcinoma
  2. ETOPOSIDE [Suspect]
     Active Substance: ETOPOSIDE
     Indication: Testicular choriocarcinoma
  3. METHIMAZOLE [Concomitant]
     Active Substance: METHIMAZOLE
     Indication: Hyperthyroidism
     Dosage: INCREASING DOSES
  4. LEVOTHYROXINE [Concomitant]
     Active Substance: LEVOTHYROXINE
     Indication: Hyperthyroidism
     Dosage: INCREASING DOSES

REACTIONS (3)
  - Acute respiratory distress syndrome [Unknown]
  - Renal failure [Recovering/Resolving]
  - Distributive shock [Unknown]
